FAERS Safety Report 4350093-5 (Version None)
Quarter: 2004Q2

REPORT INFORMATION
  Report Type: 
  Country: None (occurrence: None)
  Receive Date: 20040429
  Receipt Date: 20031029
  Transmission Date: 20050107
  Serious: Yes (Death)
  Sender: FDA-Public Use
  Company Number: US-GLAXOSMITHKLINE-B0313947A

PATIENT
  Age: 20 Year
  Sex: Female

DRUGS (3)
  1. WELLBUTRIN [Suspect]
     Dosage: 100TAB CUMULATIVE DOSE
     Route: 048
  2. THEOPHYLLINE [Suspect]
     Dosage: 100TAB CUMULATIVE DOSE
     Route: 048
  3. HEROIN [Suspect]
     Route: 045

REACTIONS (14)
  - BLOOD POTASSIUM DECREASED [None]
  - BRAIN DEATH [None]
  - COMPLETED SUICIDE [None]
  - CONVULSION [None]
  - DIALYSIS [None]
  - DISSEMINATED INTRAVASCULAR COAGULATION [None]
  - DRUG ABUSER [None]
  - HEART RATE INCREASED [None]
  - HYPOTENSION [None]
  - MULTI-ORGAN FAILURE [None]
  - MYDRIASIS [None]
  - OVERDOSE [None]
  - PUPILLARY REFLEX IMPAIRED [None]
  - PYREXIA [None]
